FAERS Safety Report 5579060-0 (Version None)
Quarter: 2007Q4

REPORT INFORMATION
  Report Type: 
  Country: None (occurrence: None)
  Receive Date: 20071228
  Receipt Date: 20071228
  Transmission Date: 20080405
  Serious: Yes (Life-Threatening, Hospitalization)
  Sender: FDA-Public Use
  Company Number: None

PATIENT
  Age: 54 Year
  Sex: Male
  Weight: 111.1313 kg

DRUGS (1)
  1. ALKA SELTZER PLUS COLD NOT GIVEN BAYER HEALTH CARE [Suspect]
     Indication: SINUS HEADACHE
     Dosage: 2 TABLETS EVERY FOUR HOURS PO
     Route: 048

REACTIONS (6)
  - FALL [None]
  - HAEMORRHAGE INTRACRANIAL [None]
  - HEAD INJURY [None]
  - SUBARACHNOID HAEMORRHAGE [None]
  - SYNCOPE [None]
  - TRAUMATIC BRAIN INJURY [None]
